FAERS Safety Report 7982073-2 (Version None)
Quarter: 2011Q4

REPORT INFORMATION
  Report Type: 
  Country: None (occurrence: None)
  Receive Date: 20111214
  Receipt Date: 20111214
  Transmission Date: 20120403
  Serious: Yes (Life-Threatening, Hospitalization, Other)
  Sender: FDA-Public Use
  Company Number: None

PATIENT
  Age: 87 Year
  Sex: Male

DRUGS (1)
  1. DABIGATRAN 150MG BI [Suspect]
     Indication: ATRIAL FIBRILLATION
     Dosage: 150MG BID ORAL 047
     Route: 048

REACTIONS (2)
  - IRON DEFICIENCY ANAEMIA [None]
  - HAEMORRHOIDAL HAEMORRHAGE [None]
